FAERS Safety Report 8524441-6 (Version None)
Quarter: 2012Q3

REPORT INFORMATION
  Report Type: 
  Country: None (occurrence: None)
  Receive Date: 20120720
  Receipt Date: 20120718
  Transmission Date: 20120928
  Serious: No
  Sender: FDA-Public Use
  Company Number: US-PFIZER INC-2012174739

PATIENT
  Sex: Female

DRUGS (1)
  1. XANAX [Suspect]
     Dosage: 1 MG, AS NEEDED
     Route: 048

REACTIONS (2)
  - DRUG INEFFECTIVE [None]
  - CIRCUMSTANCE OR INFORMATION CAPABLE OF LEADING TO MEDICATION ERROR [None]
